FAERS Safety Report 11704560 (Version 1)
Quarter: 2015Q4

REPORT INFORMATION
  Report Type: Spontaneous
  Country: US (occurrence: None)
  Receive Date: 20151105
  Receipt Date: 20151105
  Transmission Date: 20160304
  Serious: No
  Sender: FDA-Public Use
  Company Number: None

PATIENT
  Sex: Male

DRUGS (4)
  1. ZENPEP [Concomitant]
     Active Substance: PANCRELIPASE\PANCRELIPASE AMYLASE\PANCRELIPASE LIPASE\PANCRELIPASE PROTEASE
  2. TACROLIMUS. [Concomitant]
     Active Substance: TACROLIMUS
  3. VORICANOZOLE [Concomitant]
  4. TOBRAMYCIN 300MG/5ML ACORN [Suspect]
     Active Substance: TOBRAMYCIN
     Indication: CYSTIC FIBROSIS
     Dosage: 300MG/5ML
     Route: 055
     Dates: start: 20150730

REACTIONS (1)
  - Hospitalisation [None]
